FAERS Safety Report 23374888 (Version 2)
Quarter: 2024Q1

REPORT INFORMATION
  Report Type: Report from Study
  Country: US (occurrence: US)
  Receive Date: 20240106
  Receipt Date: 20240119
  Transmission Date: 20240410
  Serious: Yes (Death)
  Sender: FDA-Public Use
  Company Number: US-AMNEAL PHARMACEUTICALS-2024-AMRX-00009

PATIENT
  Sex: Male

DRUGS (1)
  1. ONGENTYS [Suspect]
     Active Substance: OPICAPONE
     Indication: Product used for unknown indication
     Dosage: 25 MILLIGRAM, (TAKE 1 CAPSULE BY MOUTH AT BEDTIME ON AN EMPTY STOMACH)
     Route: 048

REACTIONS (1)
  - Death [Fatal]
